FAERS Safety Report 5368456-8 (Version None)
Quarter: 2007Q2

REPORT INFORMATION
  Report Type: 
  Country: None (occurrence: None)
  Receive Date: 20070625
  Receipt Date: 20070611
  Transmission Date: 20071010
  Serious: Yes (Hospitalization)
  Sender: FDA-Public Use
  Company Number: US-ELI_LILLY_AND_COMPANY-US200706002174

PATIENT
  Age: 85 Year
  Sex: Female

DRUGS (2)
  1. FORTEO [Suspect]
     Indication: OSTEOPOROSIS
     Dates: start: 20060901, end: 20061108
  2. FORTEO [Suspect]
     Dosage: UNK, UNK
     Dates: start: 20070108

REACTIONS (3)
  - CHOLELITHIASIS [None]
  - EYE PAIN [None]
  - GALLBLADDER DISORDER [None]
